FAERS Safety Report 9193035 (Version 1)
Quarter: 2013Q1

REPORT INFORMATION
  Report Type: Spontaneous
  Country: CA (occurrence: CA)
  Receive Date: 20130327
  Receipt Date: 20130327
  Transmission Date: 20140127
  Serious: Yes (Other)
  Sender: FDA-Public Use
  Company Number: PHHY2013CA027985

PATIENT
  Sex: Female

DRUGS (1)
  1. TASIGNA [Suspect]
     Indication: CHRONIC MYELOID LEUKAEMIA
     Dosage: 300 MG, BID
     Route: 048
     Dates: start: 201101

REACTIONS (6)
  - Joint dislocation [Unknown]
  - Cartilage injury [Unknown]
  - Fall [Unknown]
  - Pain [Unknown]
  - Nasopharyngitis [Unknown]
  - Influenza [Unknown]
